FAERS Safety Report 25786628 (Version 1)
Quarter: 2025Q3

REPORT INFORMATION
  Report Type: Spontaneous
  Country: US (occurrence: US)
  Receive Date: 20250910
  Receipt Date: 20250910
  Transmission Date: 20251021
  Serious: Yes (Other)
  Sender: STRIDES
  Company Number: US-STRIDES ARCOLAB LIMITED-2025SP011521

PATIENT
  Age: 62 Year
  Sex: Male

DRUGS (1)
  1. HYDRALAZINE HCL [Suspect]
     Active Substance: HYDRALAZINE HYDROCHLORIDE
     Indication: Hypertension
     Route: 065

REACTIONS (3)
  - Glomerulonephritis [Recovering/Resolving]
  - Acute kidney injury [Recovering/Resolving]
  - Antineutrophil cytoplasmic antibody positive [Recovering/Resolving]
